FAERS Safety Report 6571197-2 (Version None)
Quarter: 2010Q1

REPORT INFORMATION
  Report Type: 
  Country: None (occurrence: None)
  Receive Date: 20100129
  Receipt Date: 20100113
  Transmission Date: 20100710
  Serious: Yes (Other)
  Sender: FDA-Public Use
  Company Number: 2009AC000457

PATIENT
  Sex: Female

DRUGS (42)
  1. DIGOXIN [Suspect]
     Dosage: PO
     Route: 048
     Dates: start: 20000101
  2. DIGOXIN [Suspect]
     Dosage: 0.25 MG; QD;PO
     Route: 048
     Dates: start: 20030301
  3. HYDROCODONE BITARTRATE [Concomitant]
  4. ADVAIR DISKUS 100/50 [Concomitant]
  5. FUROSEMIDE [Concomitant]
  6. SPIRONOLACTONE [Concomitant]
  7. LISINOPRIL [Concomitant]
  8. ZOLOFT [Concomitant]
  9. COREG [Concomitant]
  10. NASONEX [Concomitant]
  11. CARISOPRODOL [Concomitant]
  12. PROTONIX [Concomitant]
  13. CAPTOPRIL [Concomitant]
  14. PAXIL [Concomitant]
  15. VICODIN [Concomitant]
  16. VALIUM [Concomitant]
  17. NEXIUM [Concomitant]
  18. ZOCOR [Concomitant]
  19. HYDROCODONE BITARTRATE [Concomitant]
  20. CARISOPRODOL [Concomitant]
  21. ROPINIROLE [Concomitant]
  22. REQUIP [Concomitant]
  23. TEMAZEPAM [Concomitant]
  24. PROMETHAZINE [Concomitant]
  25. CODEINE SULFATE [Concomitant]
  26. AMOXICILLIN [Concomitant]
  27. PRILOSEC [Concomitant]
  28. CYCLOBENZAPRINE [Concomitant]
  29. CLOPIDOGREL [Concomitant]
  30. SPIRIVA [Concomitant]
  31. PRESTIGE SMART [Concomitant]
  32. HYDROXYZINE [Concomitant]
  33. TRAMADOL [Concomitant]
  34. SERTRALINE HCL [Concomitant]
  35. CIMETIDINE [Concomitant]
  36. SALSALATE [Concomitant]
  37. DIAZEPAM [Concomitant]
  38. ACETAMINOPHEN [Concomitant]
  39. CARVEDILOL [Concomitant]
  40. SIMVASTATIN [Concomitant]
  41. CLARINEX [Concomitant]
  42. DARVOCET [Concomitant]

REACTIONS (24)
  - ANXIETY [None]
  - ARTHRALGIA [None]
  - ASTHENIA [None]
  - ATRIOVENTRICULAR BLOCK SECOND DEGREE [None]
  - BLOOD PRESSURE DECREASED [None]
  - BRONCHITIS [None]
  - CARDIAC FAILURE CONGESTIVE [None]
  - CARDIOACTIVE DRUG LEVEL BELOW THERAPEUTIC [None]
  - COUGH [None]
  - DEATH OF RELATIVE [None]
  - DIZZINESS [None]
  - DYSPNOEA [None]
  - ECONOMIC PROBLEM [None]
  - EJECTION FRACTION DECREASED [None]
  - FALL [None]
  - INSOMNIA [None]
  - LEFT VENTRICULAR HYPERTROPHY [None]
  - MULTIPLE INJURIES [None]
  - NAUSEA [None]
  - PALPITATIONS [None]
  - SURGERY [None]
  - THERAPEUTIC AGENT TOXICITY [None]
  - VOMITING [None]
  - WEIGHT DECREASED [None]
